FAERS Safety Report 8535530-4 (Version None)
Quarter: 2012Q3

REPORT INFORMATION
  Report Type: 
  Country: None (occurrence: None)
  Receive Date: 20120718
  Receipt Date: 20120718
  Transmission Date: 20120928
  Serious: Yes (Other)
  Sender: FDA-Public Use
  Company Number: None

PATIENT
  Sex: Male

DRUGS (3)
  1. BENADRYL [Concomitant]
  2. RISPERIDONE [Suspect]
     Indication: BIPOLAR DISORDER
     Dosage: 2 MG ONCE A DAY PO
     Route: 048
     Dates: start: 20120103, end: 20120717
  3. RISPERIDONE [Suspect]
     Indication: SCHIZOPHRENIA
     Dosage: 2 MG ONCE A DAY PO
     Route: 048
     Dates: start: 20120103, end: 20120717

REACTIONS (2)
  - INSOMNIA [None]
  - WEIGHT INCREASED [None]
